FAERS Safety Report 5030660-6 (Version None)
Quarter: 2006Q2

REPORT INFORMATION
  Report Type: 
  Country: None (occurrence: None)
  Receive Date: 20060615
  Receipt Date: 20060612
  Transmission Date: 20061013
  Serious: Yes (Hospitalization, Other)
  Sender: FDA-Public Use
  Company Number: ITWYE671131MAY06

PATIENT
  Age: 48 Year
  Sex: Male

DRUGS (11)
  1. SIROLIMUS (SIROLIMUS, TABLET) [Suspect]
     Indication: PROPHYLAXIS AGAINST TRANSPLANT REJECTION
     Dosage: 2 MG 1X PER 1 DAY ORAL
     Route: 048
     Dates: start: 20060513, end: 20060531
  2. CYCLOSPORINE [Concomitant]
  3. PREDNISONE TAB [Concomitant]
  4. NEBIVOLOL (NEBIVOLOL) [Concomitant]
  5. FERROUS SULPHATE (FERROUS SULFATE) [Concomitant]
  6. EPOETIN BETA (EPOETIN BETA) [Concomitant]
  7. RANITIDINE [Concomitant]
  8. TYROSINE (TYROSINE) [Concomitant]
  9. AMLODIPINE [Concomitant]
  10. FLUVASTATIN (FLUVASTATIN) [Concomitant]
  11. GALENIC /SULFADIAZINE/TRIMTHOPRIM/ (SULFADIAZINE/TRIMETHOPRIM) [Concomitant]

REACTIONS (2)
  - NEPHROPATHY TOXIC [None]
  - RENAL TUBULAR NECROSIS [None]
